FAERS Safety Report 10260605 (Version 1)
Quarter: 2014Q2

REPORT INFORMATION
  Report Type: Report from Study
  Country: US (occurrence: US)
  Receive Date: 20140626
  Receipt Date: 20140626
  Transmission Date: 20141212
  Serious: Yes (Other)
  Sender: FDA-Public Use
  Company Number: US-ROCHE-1424879

PATIENT
  Sex: Male
  Weight: 102.15 kg

DRUGS (4)
  1. AVASTIN [Suspect]
     Indication: GLIOBLASTOMA MULTIFORME
     Dosage: 1000-1200 MG
     Route: 042
     Dates: start: 20131104
  2. CCNU [Concomitant]
     Route: 048
     Dates: start: 20140617
  3. VIMPAT [Concomitant]
     Indication: CONVULSION
     Route: 048
     Dates: start: 201401
  4. PREDNISONE [Concomitant]
     Indication: SWELLING
     Route: 048

REACTIONS (3)
  - Disease progression [Not Recovered/Not Resolved]
  - Fatigue [Not Recovered/Not Resolved]
  - Hypertension [Recovering/Resolving]
